FAERS Safety Report 15410909 (Version 1)
Quarter: 2018Q3

REPORT INFORMATION
  Report Type: Spontaneous
  Country: US (occurrence: US)
  Receive Date: 20180921
  Receipt Date: 20180921
  Transmission Date: 20181010
  Serious: No
  Sender: FDA-Public Use
  Company Number: US-ASTRAZENECA-2018SF08511

PATIENT
  Age: 29326 Day
  Sex: Female
  Weight: 55.8 kg

DRUGS (3)
  1. SYMBICORT [Suspect]
     Active Substance: BUDESONIDE\FORMOTEROL FUMARATE DIHYDRATE
     Indication: COUGH
     Dosage: 160/4.5 2 PUFFS TWICE A DAY
     Route: 055
     Dates: start: 20180817
  2. Z?PACK [Concomitant]
     Active Substance: AZITHROMYCIN DIHYDRATE
     Dates: start: 20180817, end: 20180823
  3. PREDNISONE. [Concomitant]
     Active Substance: PREDNISONE
     Dates: start: 20180817, end: 20180821

REACTIONS (3)
  - Diarrhoea [Unknown]
  - Product use in unapproved indication [Unknown]
  - Off label use [Unknown]

NARRATIVE: CASE EVENT DATE: 20180819
